FAERS Safety Report 6611781-0 (Version None)
Quarter: 2010Q1

REPORT INFORMATION
  Report Type: 
  Country: None (occurrence: None)
  Receive Date: 20100303
  Receipt Date: 20100216
  Transmission Date: 20100710
  Serious: Yes (Other)
  Sender: FDA-Public Use
  Company Number: US-ROCHE-680794

PATIENT
  Sex: Female

DRUGS (1)
  1. HERCEPTIN [Suspect]
     Route: 042
     Dates: start: 20100112

REACTIONS (1)
  - BURNOUT SYNDROME [None]
